FAERS Safety Report 10566443 (Version 1)
Quarter: 2014Q4

REPORT INFORMATION
  Report Type: Spontaneous
  Country: SE (occurrence: SE)
  Receive Date: 20141105
  Receipt Date: 20141105
  Transmission Date: 20150529
  Serious: Yes (Other)
  Sender: FDA-Public Use
  Company Number: SE-ASTRAZENECA-2014SE82305

PATIENT
  Age: 36 Year
  Sex: Female

DRUGS (4)
  1. SEROQUEL [Suspect]
     Active Substance: QUETIAPINE FUMARATE
     Indication: BIPOLAR DISORDER
     Route: 048
     Dates: start: 201401, end: 201402
  2. THERALEN [Concomitant]
     Active Substance: TRIMEPRAZINE
     Dosage: 40 MG/ML AS REQUIRED
  3. SEROQUEL [Suspect]
     Active Substance: QUETIAPINE FUMARATE
     Indication: BIPOLAR DISORDER
     Route: 048
  4. SEROQUEL [Suspect]
     Active Substance: QUETIAPINE FUMARATE
     Indication: BIPOLAR DISORDER
     Route: 048
     Dates: start: 201312, end: 201401

REACTIONS (4)
  - Hepatic enzyme increased [Unknown]
  - Embolism venous [Unknown]
  - Medication error [Unknown]
  - Palpitations [Unknown]

NARRATIVE: CASE EVENT DATE: 201312
